FAERS Safety Report 7799944-2 (Version None)
Quarter: 2011Q4

REPORT INFORMATION
  Report Type: 
  Country: None (occurrence: None)
  Receive Date: 20111006
  Receipt Date: 20110922
  Transmission Date: 20120403
  Serious: Yes (Hospitalization)
  Sender: FDA-Public Use
  Company Number: US-JNJFOC-20110910921

PATIENT
  Age: 18 Year
  Sex: Female
  Weight: 49.2 kg

DRUGS (8)
  1. ACETAMINOPHEN, ASPIRIN [Suspect]
     Indication: PRODUCT USED FOR UNKNOWN INDICATION
  2. ARIPIPRAZOLE [Concomitant]
  3. ACETAMINOPHEN [Suspect]
     Route: 065
  4. TOPIRAMATE [Concomitant]
  5. ACETAMINOPHEN [Suspect]
     Indication: PRODUCT USED FOR UNKNOWN INDICATION
     Route: 065
  6. METOPROLOL TARTRATE [Concomitant]
  7. FLUOXETINE [Concomitant]
  8. MELATONIN [Concomitant]

REACTIONS (2)
  - SELF INJURIOUS BEHAVIOUR [None]
  - MULTIPLE DRUG OVERDOSE INTENTIONAL [None]
